FAERS Safety Report 4327916-9 (Version None)
Quarter: 2004Q1

REPORT INFORMATION
  Report Type: 
  Country: None (occurrence: None)
  Receive Date: 20040325
  Receipt Date: 20040316
  Transmission Date: 20041129
  Serious: Yes (Hospitalization)
  Sender: FDA-Public Use
  Company Number: 2003CG01687

PATIENT
  Age: 68 Year
  Sex: Female
  Weight: 68 kg

DRUGS (17)
  1. MOPRAL [Suspect]
     Dosage: 20 MG DAILY PO
     Route: 048
     Dates: end: 20031208
  2. RIFADIN [Suspect]
     Indication: TUBERCULOSIS
     Dosage: 300 MG BID PO
     Route: 048
     Dates: start: 20030515, end: 20031206
  3. RIMIFON [Suspect]
     Indication: TUBERCULOSIS
     Dosage: 300 MG DAILY PO
     Route: 048
     Dates: start: 20030515, end: 20031206
  4. BI-PROFENID [Concomitant]
  5. DAFALGAN [Concomitant]
  6. REMICADE [Concomitant]
  7. ANAUSIN [Concomitant]
  8. RIVOTRIL [Concomitant]
  9. FENOFIBRATE [Concomitant]
  10. ALTIZIDE [Concomitant]
  11. ACTONEL [Concomitant]
  12. TOPALGIC ^HOUDE^ [Concomitant]
  13. LEVOTHYROXINE SODIUM [Concomitant]
  14. PROZAC [Concomitant]
  15. ZOLPIDEM TARTRATE [Concomitant]
  16. FORLAX [Concomitant]
  17. OROCAL D (3) [Concomitant]

REACTIONS (2)
  - LEUKOPENIA [None]
  - NEUTROPENIA [None]
